FAERS Safety Report 4989967-0 (Version None)
Quarter: 2006Q2

REPORT INFORMATION
  Report Type: 
  Country: None (occurrence: None)
  Receive Date: 20060428
  Receipt Date: 20060414
  Transmission Date: 20061013
  Serious: Yes (Hospitalization)
  Sender: FDA-Public Use
  Company Number: BE200604002912

PATIENT
  Age: 60 Year
  Sex: Female
  Weight: 80 kg

DRUGS (11)
  1. CYMBALTA [Suspect]
     Indication: DEPRESSION
     Dosage: ORAL
     Route: 048
  2. REDOMEX (AMITRIPTYLNE HYDROCHLORIDE) [Concomitant]
  3. DURAGESIC-100 [Concomitant]
  4. VALIUM [Concomitant]
  5. MEDROL ACETATE [Concomitant]
  6. COLCHICUM JTL LIQ [Concomitant]
  7. GLUCOPHAGE [Concomitant]
  8. LEVOTHYROXINE SODIUM [Concomitant]
  9. BISOPROLOL FUMARATE [Concomitant]
  10. DANDROLIN (NANDROLONE PHENPROPIONATE) [Concomitant]
  11. AACIFEMINE (ESTRIOL) [Concomitant]

REACTIONS (1)
  - COMA [None]
